FAERS Safety Report 25484651 (Version 1)
Quarter: 2025Q2

REPORT INFORMATION
  Report Type: Spontaneous
  Country: US (occurrence: None)
  Receive Date: 20250627
  Receipt Date: 20250627
  Transmission Date: 20250716
  Serious: Yes (Hospitalization, Disabling, Other)
  Sender: FDA-CTU
  Company Number: None

PATIENT
  Sex: Male

DRUGS (1)
  1. INVEGA SUSTENNA [Suspect]
     Active Substance: PALIPERIDONE PALMITATE

REACTIONS (7)
  - Product dispensing error [None]
  - Wrong product administered [None]
  - Depression [None]
  - Mental disorder [None]
  - Terminal insomnia [None]
  - Victim of crime [None]
  - Quality of life decreased [None]
